FAERS Safety Report 21787833 (Version 1)
Quarter: 2022Q4

REPORT INFORMATION
  Report Type: Spontaneous
  Country: US (occurrence: US)
  Receive Date: 20221228
  Receipt Date: 20221228
  Transmission Date: 20230112
  Serious: No
  Sender: FDA-Public Use
  Company Number: US-SA-SAC20221226000349

PATIENT
  Age: 50 Year
  Sex: Female
  Weight: 101 kg

DRUGS (1)
  1. DUPIXENT [Suspect]
     Active Substance: DUPILUMAB
     Indication: Dermatitis atopic
     Dosage: 300 MG, QOW
     Route: 058
     Dates: start: 20221111

REACTIONS (2)
  - Injection site pain [Unknown]
  - Asthma [Unknown]

NARRATIVE: CASE EVENT DATE: 20221222
